FAERS Safety Report 7730481-7 (Version None)
Quarter: 2011Q3

REPORT INFORMATION
  Report Type: 
  Country: None (occurrence: None)
  Receive Date: 20110906
  Receipt Date: 20110826
  Transmission Date: 20111222
  Serious: Yes (Hospitalization)
  Sender: FDA-Public Use
  Company Number: EC-BAXTER-2011BH027805

PATIENT

DRUGS (2)
  1. BUMINATE 25% [Suspect]
     Route: 042
  2. BUMINATE 25% [Suspect]
     Indication: PRODUCT USED FOR UNKNOWN INDICATION
     Route: 042

REACTIONS (4)
  - HYPERHIDROSIS [None]
  - HYPERTHERMIA [None]
  - TACHYCARDIA [None]
  - BLOOD PRESSURE FLUCTUATION [None]
